FAERS Safety Report 4811089-X (Version None)
Quarter: 2005Q4

REPORT INFORMATION
  Report Type: 
  Country: None (occurrence: None)
  Receive Date: 20051025
  Receipt Date: 20051004
  Transmission Date: 20060501
  Serious: Yes (Hospitalization, Disabling)
  Sender: FDA-Public Use
  Company Number: 408632

PATIENT
  Age: 23 Year
  Sex: Male
  Weight: 79.4 kg

DRUGS (2)
  1. ACCUTANE [Suspect]
     Indication: ACNE
     Dosage: ORAL
     Route: 048
     Dates: start: 19840615
  2. IBUPROFEN [Concomitant]

REACTIONS (51)
  - ANAEMIA [None]
  - ANAL FISSURE [None]
  - ANAL ULCER [None]
  - ANHEDONIA [None]
  - ANXIETY [None]
  - ARTHRALGIA [None]
  - ARTHRITIS [None]
  - BACK PAIN [None]
  - BLEEDING TIME PROLONGED [None]
  - BODY TEMPERATURE INCREASED [None]
  - BURSITIS [None]
  - BUTTOCK PAIN [None]
  - CHEILITIS [None]
  - COLITIS [None]
  - COLITIS ULCERATIVE [None]
  - CROHN'S DISEASE [None]
  - DIARRHOEA [None]
  - DIARRHOEA HAEMORRHAGIC [None]
  - DRY SKIN [None]
  - FATIGUE [None]
  - GASTROINTESTINAL DISORDER [None]
  - GASTROINTESTINAL HAEMORRHAGE [None]
  - GENERALISED OEDEMA [None]
  - GOUT [None]
  - HAEMATOCHEZIA [None]
  - HAEMOLYSIS [None]
  - HEADACHE [None]
  - HYPOALBUMINAEMIA [None]
  - INFLAMMATION [None]
  - INFLAMMATORY BOWEL DISEASE [None]
  - INJURY [None]
  - INTESTINAL HAEMORRHAGE [None]
  - IRRITABLE BOWEL SYNDROME [None]
  - LEUKOCYTOSIS [None]
  - LIVER FUNCTION TEST ABNORMAL [None]
  - LOWER GASTROINTESTINAL HAEMORRHAGE [None]
  - MULTI-ORGAN DISORDER [None]
  - PAIN [None]
  - PELVIC HAEMORRHAGE [None]
  - PHARMACEUTICAL PRODUCT COMPLAINT [None]
  - PLANTAR FASCIITIS [None]
  - PLATELET COUNT DECREASED [None]
  - POOR QUALITY DRUG ADMINISTERED [None]
  - POUCHITIS [None]
  - PROCTALGIA [None]
  - RASH [None]
  - RECTAL DISCHARGE [None]
  - RECTAL HAEMORRHAGE [None]
  - RECTAL ULCER [None]
  - SMALL INTESTINE ULCER [None]
  - WEIGHT DECREASED [None]
